FAERS Safety Report 16721705 (Version 1)
Quarter: 2019Q3

REPORT INFORMATION
  Report Type: Spontaneous
  Country: DE (occurrence: DE)
  Receive Date: 20190820
  Receipt Date: 20190820
  Transmission Date: 20191005
  Serious: Yes (Hospitalization)
  Sender: FDA-Public Use
  Company Number: DE-TEVA-2019-DE-1093253

PATIENT
  Age: 45 Year
  Sex: Female

DRUGS (6)
  1. TAVOR [Concomitant]
     Dosage: 1 MG, NEED
  2. PANTOPRAZOL [Suspect]
     Active Substance: PANTOPRAZOLE SODIUM
     Dosage: NK MG, ON 05.09.2017; REQUIREMENT
  3. TRUXAL 50MG [Concomitant]
     Dosage: 50 MG, 0-0-0-1
  4. VALPROINSAEURE [Concomitant]
     Active Substance: VALPROIC ACID
     Dosage: 500 MG, 0-0-1-0P
  5. VENLAFAXINE [Concomitant]
     Active Substance: VENLAFAXINE HYDROCHLORIDE
     Dosage: 225 MG, 1-0-0-0
  6. VALPROINSAEURE [Concomitant]
     Active Substance: VALPROIC ACID
     Dosage: 300 MG, 1-0-0-0

REACTIONS (6)
  - Vomiting [Recovered/Resolved]
  - Dizziness [Recovered/Resolved]
  - Nausea [Recovered/Resolved]
  - Erythema [Recovered/Resolved]
  - Cold sweat [Recovered/Resolved]
  - Rash [Recovered/Resolved]
